FAERS Safety Report 10075818 (Version 1)
Quarter: 2014Q2

REPORT INFORMATION
  Report Type: Spontaneous
  Country: US (occurrence: US)
  Receive Date: 20140414
  Receipt Date: 20140414
  Transmission Date: 20141212
  Serious: Yes (Other)
  Sender: FDA-Public Use
  Company Number: US-TEVA-474695USA

PATIENT
  Age: 46 Year
  Sex: Female

DRUGS (1)
  1. FLECAINIDE [Suspect]
     Route: 065

REACTIONS (6)
  - Toxicity to various agents [Recovered/Resolved]
  - Electrocardiogram PR prolongation [Recovered/Resolved]
  - Electrocardiogram QT prolonged [Recovered/Resolved]
  - Electrocardiogram QRS complex prolonged [Recovered/Resolved]
  - Bundle branch block right [Recovered/Resolved]
  - Bundle branch block left [Recovered/Resolved]
